FAERS Safety Report 7701557-5 (Version None)
Quarter: 2011Q3

REPORT INFORMATION
  Report Type: 
  Country: None (occurrence: None)
  Receive Date: 20110822
  Receipt Date: 20110818
  Transmission Date: 20111222
  Serious: Yes (Life-Threatening, Hospitalization)
  Sender: FDA-Public Use
  Company Number: FR-BRISTOL-MYERS SQUIBB COMPANY-15984776

PATIENT
  Age: 89 Year
  Sex: Female

DRUGS (10)
  1. DIGOXIN [Concomitant]
  2. PROZAC [Concomitant]
     Dosage: 1DF=20 UNIT NOT SPECIFIED
  3. MOTILYO [Concomitant]
  4. HYPERIUM [Concomitant]
  5. COUMADIN [Suspect]
     Dosage: EVENING
  6. OXAZEPAM [Concomitant]
     Dosage: 1 TO 2 PER DAY
  7. NICARDIPINE HCL [Concomitant]
  8. BISOPROLOL FUMARATE [Concomitant]
     Dosage: 1DF=SOPROL10 MG 1.5/DAY
  9. ALLOPURINOL [Concomitant]
     Dosage: 1DF=200 UNIT NOT SPECIFIED
  10. ATARAX [Concomitant]
     Dosage: 1DF=25 UNIT NOT SPECIFIED

REACTIONS (3)
  - FALL [None]
  - RIB FRACTURE [None]
  - HAEMATOMA [None]
